FAERS Safety Report 20836970 (Version 1)
Quarter: 2022Q2

REPORT INFORMATION
  Report Type: Spontaneous
  Country: US (occurrence: US)
  Receive Date: 20220517
  Receipt Date: 20220517
  Transmission Date: 20220721
  Serious: No
  Sender: FDA-Public Use
  Company Number: US-BRISTOL-MYERS SQUIBB COMPANY-2022-024541

PATIENT
  Age: 68 Year
  Sex: Female

DRUGS (5)
  1. REVLIMID [Suspect]
     Active Substance: LENALIDOMIDE
     Indication: Plasma cell myeloma
     Dosage: TAKE 1 CAPSULE BY MOUTH DAILY FOR 21 DAYS ON THEN 7 DAYS OFF
     Route: 048
     Dates: start: 20220225
  2. AMLODIPINE TAB [Concomitant]
     Indication: Product used for unknown indication
  3. METOPROL TAR TAB [Concomitant]
     Indication: Product used for unknown indication
  4. VALACYCLOVIR TAB [Concomitant]
     Indication: Product used for unknown indication
  5. VITAMIN D3 CAP [Concomitant]
     Indication: Product used for unknown indication

REACTIONS (1)
  - Abdominal pain upper [Unknown]
